FAERS Safety Report 10818758 (Version 1)
Quarter: 2015Q1

REPORT INFORMATION
  Report Type: Report from Study
  Country: US (occurrence: None)
  Receive Date: 20150213
  Receipt Date: 20150213
  Transmission Date: 20150721
  Serious: Yes (Hospitalization)
  Sender: FDA-Public Use
  Company Number: 2015BI013146

PATIENT
  Age: 48 Year
  Sex: Female

DRUGS (2)
  1. TYSABRI [Concomitant]
     Active Substance: NATALIZUMAB
  2. AVONEX [Suspect]
     Active Substance: INTERFERON BETA-1A
     Indication: MULTIPLE SCLEROSIS
     Route: 030

REACTIONS (10)
  - Nasopharyngitis [None]
  - Diarrhoea [None]
  - Pyrexia [None]
  - Cough [None]
  - Oropharyngeal pain [None]
  - Pain in extremity [None]
  - Multiple sclerosis relapse [None]
  - Muscle tightness [None]
  - Nausea [None]
  - Dizziness [None]

NARRATIVE: CASE EVENT DATE: 20140915
